FAERS Safety Report 7042800 (Version 2)
Quarter: 2017Q4

REPORT INFORMATION
  Report Type: Spontaneous
  Country: US (occurrence: US)
  Receive Date: 20070206
  Receipt Date: 20171115
  Transmission Date: 20180321
  Serious: Yes (Life-Threatening, Other)
  Sender: FDA-Public Use
  Company Number: US-PFIZER INC-2007007314

PATIENT
  Sex: Female

DRUGS (1)
  1. ATGAM [Suspect]
     Active Substance: EQUINE THYMOCYTE IMMUNE GLOBULIN

REACTIONS (2)
  - Apparent life threatening event [Unknown]
  - Drug specific antibody present [Not Recovered/Not Resolved]

NARRATIVE: CASE EVENT DATE: 20070124
